FAERS Safety Report 8974620 (Version 2)
Quarter: 2013Q1

REPORT INFORMATION
  Report Type: Spontaneous
  Country: US (occurrence: US)
  Receive Date: 20121219
  Receipt Date: 20130212
  Transmission Date: 20140127
  Serious: Yes (Other)
  Sender: FDA-Public Use
  Company Number: US-PFIZER INC-2012322308

PATIENT
  Age: 68 Year
  Sex: Male
  Weight: 82 kg

DRUGS (5)
  1. GABAPENTIN [Suspect]
     Indication: NEURALGIA
     Dosage: 600 MG, 3X/DAY
     Route: 048
     Dates: end: 2010
  2. GABAPENTIN [Suspect]
     Indication: PROCEDURAL PAIN
  3. GABAPENTIN [Suspect]
     Indication: SENSORY NEUROPATHY HEREDITARY
  4. GABAPENTIN [Suspect]
     Indication: PERIPHERAL SENSORY NEUROPATHY
  5. LISINOPRIL W/HYDROCHLOROTHIAZIDE [Concomitant]
     Indication: HYPERTENSION
     Dosage: LISINOPRIL 20 MG / HYDROCHLOROTHIAZIDE 25 MG, 1X/DAY

REACTIONS (2)
  - Neuropathy peripheral [Unknown]
  - Limb discomfort [Unknown]
